FAERS Safety Report 4874838-0 (Version None)
Quarter: 2006Q1

REPORT INFORMATION
  Report Type: 
  Country: None (occurrence: None)
  Receive Date: 20060104
  Receipt Date: 20051219
  Transmission Date: 20060701
  Serious: Yes (Hospitalization)
  Sender: FDA-Public Use
  Company Number: 2000024315FR

PATIENT
  Age: 58 Year
  Sex: Female

DRUGS (4)
  1. ADRIBLASTINE (DOXORUBICIN HYDROCHLORIDE) [Suspect]
     Indication: SMALL CELL LUNG CANCER STAGE UNSPECIFIED
     Dosage: 40 MG (40 MG, QD), INTRAVENOUS
     Route: 042
     Dates: start: 20000210, end: 20000512
  2. CISPLATIN [Suspect]
     Indication: SMALL CELL LUNG CANCER STAGE UNSPECIFIED
     Dosage: 40 MG (40 MG, QD), INTRAVENOUS
     Route: 042
     Dates: start: 20000510, end: 20000512
  3. CYCLOPHOSPHAMIDE [Suspect]
     Indication: SMALL CELL LUNG CANCER STAGE UNSPECIFIED
     Dosage: 1200 MG (1200 MG, QD) INTRAVENOUS
     Route: 042
     Dates: start: 20000510, end: 20000510
  4. ETOPOSIDE [Suspect]
     Indication: SMALL CELL LUNG CANCER STAGE UNSPECIFIED
     Dosage: 110 MG (110 MG, QD), INTRAVENOUS
     Route: 042
     Dates: start: 20000510, end: 20000512

REACTIONS (4)
  - HYPOCHLORAEMIA [None]
  - HYPOKALAEMIA [None]
  - HYPONATRAEMIA [None]
  - RENAL DISORDER [None]
